FAERS Safety Report 7288419-5 (Version None)
Quarter: 2011Q1

REPORT INFORMATION
  Report Type: 
  Country: None (occurrence: None)
  Receive Date: 20110211
  Receipt Date: 20110203
  Transmission Date: 20110831
  Serious: Yes (Other)
  Sender: FDA-Public Use
  Company Number: A0911324A

PATIENT
  Age: 55 Year
  Sex: Female

DRUGS (1)
  1. PROMACTA [Suspect]
     Dates: start: 20101119, end: 20101221

REACTIONS (6)
  - NAUSEA [None]
  - DECREASED APPETITE [None]
  - ABDOMINAL PAIN UPPER [None]
  - HEPATOTOXICITY [None]
  - VOMITING [None]
  - THROMBOCYTOSIS [None]
